FAERS Safety Report 22660060 (Version 1)
Quarter: 2023Q2

REPORT INFORMATION
  Report Type: Spontaneous
  Country: CL (occurrence: CL)
  Receive Date: 20230630
  Receipt Date: 20230630
  Transmission Date: 20230722
  Serious: Yes (Other)
  Sender: FDA-Public Use
  Company Number: CL-009507513-2305CHL009133

PATIENT
  Age: 45 Year
  Sex: Female

DRUGS (7)
  1. INVANZ [Suspect]
     Active Substance: ERTAPENEM SODIUM
     Indication: Pyelonephritis acute
     Dosage: 1GR EVERY 12 HRS
     Dates: start: 20230202, end: 2023
  2. INVANZ [Suspect]
     Active Substance: ERTAPENEM SODIUM
     Dosage: 1 G EVERY 24H
     Dates: start: 2023, end: 20230511
  3. INSULIN BEEF [Concomitant]
     Active Substance: INSULIN BEEF
     Dosage: 30 U AM AND 10 U PM.
  4. METFORMIN [Concomitant]
     Active Substance: METFORMIN HYDROCHLORIDE
     Dosage: 1 TABLET AT LUNCH AND 1 TABLET AT DINNER
     Route: 048
  5. FUROSEMIDE [Concomitant]
     Active Substance: FUROSEMIDE
     Dosage: 1 TABLET EVERY 24 HOURS
     Route: 048
  6. LACTULOSE [Concomitant]
     Active Substance: LACTULOSE
     Dosage: ^SOS^ IN CASE OF CONSTIPATION
  7. ACETAMINOPHEN [Concomitant]
     Active Substance: ACETAMINOPHEN
     Dosage: 1GR EVERY 8 HRS PO IF PAIN
     Route: 048

REACTIONS (7)
  - Aplastic anaemia [Recovering/Resolving]
  - Alopecia [Recovering/Resolving]
  - Hypoalbuminaemia [Unknown]
  - Vitamin D abnormal [Unknown]
  - Glycosylated haemoglobin abnormal [Unknown]
  - Incorrect product administration duration [Unknown]
  - Incorrect dosage administered [Unknown]

NARRATIVE: CASE EVENT DATE: 20230101
